FAERS Safety Report 8437049-8 (Version None)
Quarter: 2012Q2

REPORT INFORMATION
  Report Type: 
  Country: None (occurrence: None)
  Receive Date: 20120323
  Receipt Date: 20110830
  Transmission Date: 20120825
  Serious: Yes (Hospitalization)
  Sender: FDA-Public Use
  Company Number: 163-21880-11062339

PATIENT
  Age: 73 Year
  Sex: Male
  Weight: 95.4 kg

DRUGS (2)
  1. REVLIMID [Suspect]
     Indication: MULTIPLE MYELOMA
     Dosage: 25 MG, DAILY X 14 DAYS, PO; 7.5 MG, 1 IN 2 D, PO
     Route: 048
     Dates: start: 20110126
  2. REVLIMID [Suspect]
     Indication: MULTIPLE MYELOMA
     Dosage: 25 MG, DAILY X 14 DAYS, PO; 7.5 MG, 1 IN 2 D, PO
     Route: 048
     Dates: start: 20110301

REACTIONS (4)
  - PYREXIA [None]
  - BRONCHITIS [None]
  - CONFUSIONAL STATE [None]
  - ASTHENIA [None]
